FAERS Safety Report 7898742-9 (Version None)
Quarter: 2011Q4

REPORT INFORMATION
  Report Type: 
  Country: None (occurrence: None)
  Receive Date: 20111107
  Receipt Date: 20110831
  Transmission Date: 20120403
  Serious: No
  Sender: FDA-Public Use
  Company Number: US-ABBOTT-10P-163-0694429-00

PATIENT
  Sex: Female
  Weight: 131.21 kg

DRUGS (6)
  1. SYNTHROID [Concomitant]
     Indication: HYPOTHYROIDISM
  2. TRICOR [Suspect]
     Indication: BLOOD TRIGLYCERIDES INCREASED
     Dosage: SAMPLES, 1 DAILY
     Dates: start: 20101001, end: 20101221
  3. ATENOLOL [Concomitant]
     Indication: HYPERTENSION
  4. ALLERGY SHOTS [Concomitant]
     Indication: HYPERSENSITIVITY
  5. ALAVERT [Concomitant]
     Indication: HYPERSENSITIVITY
  6. MULTIPLE VITAMINS [Concomitant]
     Indication: VITAMIN SUPPLEMENTATION

REACTIONS (2)
  - DIZZINESS [None]
  - MUSCLE SPASMS [None]
